FAERS Safety Report 5228697-7 (Version None)
Quarter: 2007Q1

REPORT INFORMATION
  Report Type: 
  Country: None (occurrence: None)
  Receive Date: 20070205
  Receipt Date: 20070123
  Transmission Date: 20070707
  Serious: Yes (Death)
  Sender: FDA-Public Use
  Company Number: US-PURDUE-USA_2007_0026300

PATIENT
  Age: 48 Year
  Sex: Male

DRUGS (5)
  1. OXYCODONE HCL [Suspect]
     Indication: DRUG ABUSER
     Dosage: UNK, UNK
  2. COCAINE [Suspect]
     Indication: DRUG ABUSER
     Dosage: UNK, UNK
  3. ALPRAZOLAM [Suspect]
     Indication: DRUG ABUSER
  4. METHADONE HCL [Suspect]
     Indication: DRUG ABUSER
     Dosage: UNK, UNK
  5. PROPOXYPHENE HYDROCHLORIDE [Suspect]
     Indication: DRUG ABUSER
     Dosage: UNK, UNK

REACTIONS (3)
  - MULTIPLE DRUG OVERDOSE ACCIDENTAL [None]
  - PAIN [None]
  - SUBSTANCE ABUSE [None]
